FAERS Safety Report 23975227 (Version 2)
Quarter: 2024Q2

REPORT INFORMATION
  Report Type: Spontaneous
  Country: NL (occurrence: NL)
  Receive Date: 20240614
  Receipt Date: 20240620
  Transmission Date: 20240716
  Serious: Yes (Life-Threatening, Hospitalization, Other)
  Sender: FDA-Public Use
  Company Number: NL-AUROBINDO-AUR-APL-2024-028902

PATIENT
  Age: 14 Year
  Sex: Male
  Weight: 60 kg

DRUGS (16)
  1. BACLOFEN [Interacting]
     Active Substance: BACLOFEN
     Indication: Neurodegeneration with brain iron accumulation disorder
     Dosage: 364.5 MICROGRAM, ONCE A DAY (ITB DOSAGE WAS 364.5 MCG/D)
     Route: 037
  2. BACLOFEN [Interacting]
     Active Substance: BACLOFEN
     Indication: Cerebral palsy
     Dosage: 75 MICROGRAM (THREE BOLUSES OF 75 MCG/BOLUS PER DAY)
     Route: 037
  3. BACLOFEN [Interacting]
     Active Substance: BACLOFEN
     Indication: Muscle spasticity
  4. BACLOFEN [Interacting]
     Active Substance: BACLOFEN
     Indication: Dystonia
  5. REMIFENTANIL [Suspect]
     Active Substance: REMIFENTANIL
     Indication: Analgesic therapy
     Dosage: UNK
     Route: 065
  6. REMIFENTANIL [Suspect]
     Active Substance: REMIFENTANIL
     Indication: Cerebral palsy
  7. REMIFENTANIL [Suspect]
     Active Substance: REMIFENTANIL
     Indication: Muscle spasticity
  8. REMIFENTANIL [Suspect]
     Active Substance: REMIFENTANIL
     Indication: Dystonia
  9. PIRITRAMIDE [Interacting]
     Active Substance: PIRITRAMIDE
     Indication: Analgesic therapy
     Dosage: 5 MILLIGRAM, TOTAL
     Route: 065
  10. PIRITRAMIDE [Interacting]
     Active Substance: PIRITRAMIDE
     Indication: Cerebral palsy
  11. PIRITRAMIDE [Interacting]
     Active Substance: PIRITRAMIDE
     Indication: Muscle spasticity
  12. PIRITRAMIDE [Interacting]
     Active Substance: PIRITRAMIDE
     Indication: Dystonia
  13. BACLOFEN [Concomitant]
     Active Substance: BACLOFEN
     Indication: Muscle spasticity
     Dosage: 5 MILLIGRAM
     Route: 048
  14. BACLOFEN [Concomitant]
     Active Substance: BACLOFEN
     Indication: Dystonia
  15. CLONAZEPAM [Concomitant]
     Active Substance: CLONAZEPAM
     Indication: Product used for unknown indication
     Dosage: 1.5 MILLIGRAM
     Route: 065
  16. GABAPENTIN [Concomitant]
     Active Substance: GABAPENTIN
     Indication: Product used for unknown indication
     Dosage: 600 MILLIGRAM
     Route: 065

REACTIONS (5)
  - Respiratory depression [Recovered/Resolved]
  - Unresponsive to stimuli [Recovered/Resolved]
  - Drug interaction [Unknown]
  - Miosis [Recovered/Resolved]
  - Overdose [Unknown]

NARRATIVE: CASE EVENT DATE: 20210101
